FAERS Safety Report 6871460-1 (Version None)
Quarter: 2010Q3

REPORT INFORMATION
  Report Type: 
  Country: None (occurrence: None)
  Receive Date: 20100723
  Receipt Date: 20100714
  Transmission Date: 20110219
  Serious: Yes (Other)
  Sender: FDA-Public Use
  Company Number: US-BAYER-201028043NA

PATIENT
  Age: 63 Year
  Sex: Female

DRUGS (1)
  1. CIPRO [Suspect]
     Indication: CYSTITIS

REACTIONS (2)
  - JOINT SWELLING [None]
  - LIGAMENT RUPTURE [None]
